FAERS Safety Report 25369123 (Version 2)
Quarter: 2025Q3

REPORT INFORMATION
  Report Type: Report from Study
  Country: US (occurrence: US)
  Receive Date: 20250528
  Receipt Date: 20250810
  Transmission Date: 20251021
  Serious: Yes (Hospitalization, Other)
  Sender: ALEXION PHARMACEUTICALS
  Company Number: US-AstraZeneca-CH-00873811A

PATIENT
  Sex: Female

DRUGS (1)
  1. SOLIRIS [Suspect]
     Active Substance: ECULIZUMAB
     Indication: Neuromyelitis optica spectrum disorder
     Route: 065

REACTIONS (6)
  - Neuromyelitis optica spectrum disorder [Unknown]
  - Infection [Not Recovered/Not Resolved]
  - Diabetes mellitus [Unknown]
  - Ketoacidosis [Unknown]
  - Blister infected [Unknown]
  - Pain [Unknown]
